FAERS Safety Report 6930404-4 (Version None)
Quarter: 2010Q3

REPORT INFORMATION
  Report Type: 
  Country: None (occurrence: None)
  Receive Date: 20100818
  Receipt Date: 20100809
  Transmission Date: 20110219
  Serious: Yes (Other)
  Sender: FDA-Public Use
  Company Number: JP-JNJFOC-20100605213

PATIENT
  Sex: Female
  Weight: 65 kg

DRUGS (12)
  1. DOXIL [Suspect]
     Indication: OVARIAN CANCER RECURRENT
     Dosage: CYCLE 3
     Route: 042
  2. DOXIL [Suspect]
     Dosage: CYCLE 1
     Route: 042
  3. DOXIL [Suspect]
     Route: 042
  4. DOXIL [Suspect]
     Dosage: CYCLE 2
     Route: 042
  5. PRIMPERAN TAB [Concomitant]
     Indication: PROPHYLAXIS
     Route: 048
  6. CLARITIN [Concomitant]
     Indication: PRODUCT USED FOR UNKNOWN INDICATION
     Route: 048
  7. DEPAS [Concomitant]
     Indication: PRODUCT USED FOR UNKNOWN INDICATION
     Route: 048
  8. GASTER D [Concomitant]
     Indication: PRODUCT USED FOR UNKNOWN INDICATION
     Route: 048
  9. KERATINAMIN [Concomitant]
     Indication: PRODUCT USED FOR UNKNOWN INDICATION
     Route: 061
  10. PYDOXAL [Concomitant]
     Route: 048
  11. DEXALTIN [Concomitant]
     Route: 049
  12. AFTACH [Concomitant]
     Route: 049

REACTIONS (2)
  - ANAL EROSION [None]
  - STOMATITIS [None]
